FAERS Safety Report 4733578-9 (Version None)
Quarter: 2005Q3

REPORT INFORMATION
  Report Type: 
  Country: None (occurrence: None)
  Receive Date: 20050729
  Receipt Date: 20050719
  Transmission Date: 20060218
  Serious: Yes (Other)
  Sender: FDA-Public Use
  Company Number: 2005102793

PATIENT
  Age: 52 Year
  Sex: Male

DRUGS (1)
  1. NICORETTE [Suspect]
     Dosage: 21 MG, TRANSDERMAL
     Route: 062

REACTIONS (1)
  - ISCHAEMIC STROKE [None]
